FAERS Safety Report 13180548 (Version 3)
Quarter: 2017Q1

REPORT INFORMATION
  Report Type: Spontaneous
  Country: US (occurrence: US)
  Receive Date: 20170202
  Receipt Date: 20170303
  Transmission Date: 20170428
  Serious: Yes (Other)
  Sender: FDA-Public Use
  Company Number: US-ALLERGAN-1700618US

PATIENT
  Age: 67 Year
  Sex: Male

DRUGS (4)
  1. JANUMET [Concomitant]
     Active Substance: METFORMIN HYDROCHLORIDE\SITAGLIPTIN PHOSPHATE
     Indication: DIABETES MELLITUS
     Route: 048
  2. VIROPTIC [Concomitant]
     Active Substance: TRIFLURIDINE
     Indication: PRODUCT USED FOR UNKNOWN INDICATION
     Route: 047
  3. LOVASTATIN. [Concomitant]
     Active Substance: LOVASTATIN
     Indication: BLOOD CHOLESTEROL
     Route: 048
  4. PRED FORTE [Suspect]
     Active Substance: PREDNISOLONE ACETATE
     Indication: EYE DISORDER
     Dosage: 1 GTT, BID
     Route: 047
     Dates: start: 1990

REACTIONS (3)
  - Cataract [Recovered/Resolved with Sequelae]
  - Eye disorder [Not Recovered/Not Resolved]
  - Eye infection viral [Not Recovered/Not Resolved]

NARRATIVE: CASE EVENT DATE: 2016
